FAERS Safety Report 6509608-0 (Version None)
Quarter: 2009Q4

REPORT INFORMATION
  Report Type: 
  Country: None (occurrence: None)
  Receive Date: 20091222
  Receipt Date: 20091210
  Transmission Date: 20100525
  Serious: Yes (Hospitalization)
  Sender: FDA-Public Use
  Company Number: GB-ROCHE-674903

PATIENT
  Sex: Female

DRUGS (3)
  1. OSELTAMIVIR [Suspect]
     Indication: H1N1 INFLUENZA
     Dosage: 10 DAY COURSE
     Route: 064
  2. AMOXICILLIN AND CLAVULANATE POTASSIUM [Suspect]
     Indication: ANTIBIOTIC THERAPY
     Route: 064
  3. CLARITHROMYCIN [Suspect]
     Indication: ANTIBIOTIC THERAPY
     Route: 064

REACTIONS (5)
  - FOETAL DISTRESS SYNDROME [None]
  - H1N1 INFLUENZA [None]
  - INFLUENZA [None]
  - LIVE BIRTH [None]
  - MATERNAL DRUGS AFFECTING FOETUS [None]
